FAERS Safety Report 11720433 (Version 1)
Quarter: 2015Q4

REPORT INFORMATION
  Report Type: Report from Study
  Country: DE (occurrence: DE)
  Receive Date: 20151110
  Receipt Date: 20151110
  Transmission Date: 20160304
  Serious: Yes (Death, Hospitalization, Other)
  Sender: FDA-Public Use
  Company Number: DE-BRISTOL-MYERS SQUIBB COMPANY-BMS-2015-077308

PATIENT
  Age: 78 Year
  Sex: Male
  Weight: 103 kg

DRUGS (1)
  1. APIXABAN [Suspect]
     Active Substance: APIXABAN
     Indication: CEREBROVASCULAR ACCIDENT PROPHYLAXIS
     Dosage: 5 MG, BID
     Route: 048
     Dates: start: 20140403

REACTIONS (2)
  - Aortic aneurysm rupture [Fatal]
  - Pneumonia bacterial [Recovered/Resolved with Sequelae]

NARRATIVE: CASE EVENT DATE: 20140521
